FAERS Safety Report 25543552 (Version 1)
Quarter: 2025Q3

REPORT INFORMATION
  Report Type: Spontaneous
  Country: US (occurrence: US)
  Receive Date: 20250711
  Receipt Date: 20250711
  Transmission Date: 20251020
  Serious: Yes (Death, Other)
  Sender: RANBAXY
  Company Number: US-SUN PHARMACEUTICAL INDUSTRIES LTD-2025R1-515975

PATIENT
  Age: 19 Year
  Sex: Female

DRUGS (4)
  1. LORAZEPAM [Suspect]
     Active Substance: LORAZEPAM
     Indication: Sedative therapy
     Route: 065
  2. MORPHINE [Suspect]
     Active Substance: MORPHINE
     Indication: Sedative therapy
     Route: 065
  3. PRECEDEX [Suspect]
     Active Substance: DEXMEDETOMIDINE HYDROCHLORIDE
     Indication: Sedative therapy
     Route: 065
  4. ATIVAN [Concomitant]
     Active Substance: LORAZEPAM
     Indication: Sedative therapy
     Route: 065

REACTIONS (4)
  - Acute respiratory failure [Fatal]
  - Hypoxia [Fatal]
  - COVID-19 pneumonia [Fatal]
  - Overdose [Fatal]

NARRATIVE: CASE EVENT DATE: 20211001
